FAERS Safety Report 22521230 (Version 1)
Quarter: 2023Q2

REPORT INFORMATION
  Report Type: Spontaneous
  Country: NL (occurrence: NL)
  Receive Date: 20230605
  Receipt Date: 20230605
  Transmission Date: 20230722
  Serious: Yes (Life-Threatening)
  Sender: FDA-Public Use
  Company Number: None

PATIENT
  Sex: Female
  Weight: 53 kg

DRUGS (1)
  1. SUNITINIB [Suspect]
     Active Substance: SUNITINIB
     Indication: Renal cell carcinoma
     Dosage: 50 MILLIGRAM, QD (1X PER DAY 1 PIECE)
     Route: 065
     Dates: start: 20230401, end: 20230511

REACTIONS (2)
  - Cardiogenic shock [Recovering/Resolving]
  - Cardiac failure congestive [Recovering/Resolving]
